FAERS Safety Report 18311244 (Version 1)
Quarter: 2020Q3

REPORT INFORMATION
  Report Type: Spontaneous
  Country: US (occurrence: US)
  Receive Date: 20200916
  Receipt Date: 20200916
  Transmission Date: 20201103
  Serious: No
  Sender: FDA-Public Use
  Company Number: None

PATIENT
  Age: 5 Decade
  Sex: Female

DRUGS (3)
  1. RECOMBINANT HUMAN INTERFERON ALPHA 1B [Suspect]
     Active Substance: INTERFERON ALFA-1B
     Indication: COVID-19
     Route: 055
     Dates: start: 2020
  2. LOPINAVIR?RITONAVIR [Suspect]
     Active Substance: LOPINAVIR\RITONAVIR
     Indication: COVID-19
     Route: 048
     Dates: start: 2020
  3. RIBAVIRIN. [Suspect]
     Active Substance: RIBAVIRIN
     Indication: COVID-19
     Dosage: ?          OTHER DOSE:50 UG ;?
     Route: 042
     Dates: start: 2020

REACTIONS (1)
  - Off label use [None]
